FAERS Safety Report 5925552-1 (Version None)
Quarter: 2008Q4

REPORT INFORMATION
  Report Type: 
  Country: None (occurrence: None)
  Receive Date: 20081021
  Receipt Date: 20081016
  Transmission Date: 20090506
  Serious: Yes (Death, Hospitalization)
  Sender: FDA-Public Use
  Company Number: PHHY2008AU24727

PATIENT
  Age: 68 Year
  Sex: Male

DRUGS (3)
  1. STALEVO 100 [Suspect]
     Indication: PARKINSON'S DISEASE
     Dosage: 150 MG, 5QD
     Dates: start: 20060613
  2. MODOPAR [Concomitant]
     Dosage: 200 MG
  3. WARFARIN SODIUM [Concomitant]

REACTIONS (3)
  - GASTROINTESTINAL CARCINOMA [None]
  - PNEUMONIA ASPIRATION [None]
  - SURGERY [None]
